FAERS Safety Report 5806400-7 (Version None)
Quarter: 2008Q3

REPORT INFORMATION
  Report Type: 
  Country: None (occurrence: None)
  Receive Date: 20080710
  Receipt Date: 20080703
  Transmission Date: 20090109
  Serious: Yes (Other)
  Sender: FDA-Public Use
  Company Number: JP-ABBOTT-08P-087-0459504-00

PATIENT
  Age: 53 Year
  Sex: Female

DRUGS (6)
  1. KLARICID [Suspect]
     Indication: ATYPICAL MYCOBACTERIAL INFECTION
     Dosage: NOT REPORTED
     Dates: end: 20070313
  2. ETHAMBUTOL DIHYDROCHLORIDE [Suspect]
     Indication: ATYPICAL MYCOBACTERIAL INFECTION
     Dosage: NOT REPORTED
     Dates: end: 20070313
  3. CIPROFLOXACIN [Suspect]
     Indication: ATYPICAL MYCOBACTERIAL INFECTION
     Dosage: NOT REPORTED
     Dates: end: 20070313
  4. REBAMIPIDE [Suspect]
     Indication: ATYPICAL MYCOBACTERIAL INFECTION
     Dosage: NOT REPORTED
     Dates: end: 20070313
  5. ANTIBIOTICS-RESISTANT LACTIC ACID BACTERIAE [Suspect]
     Indication: ATYPICAL MYCOBACTERIAL INFECTION
     Dosage: NOT REPORTED
     Dates: end: 20070313
  6. ETIZOLAM [Suspect]
     Indication: ATYPICAL MYCOBACTERIAL INFECTION
     Dosage: NOT REPORTED
     Dates: end: 20070313

REACTIONS (1)
  - PNEUMATOSIS INTESTINALIS [None]
